FAERS Safety Report 12202651 (Version 2)
Quarter: 2016Q1

REPORT INFORMATION
  Report Type: Spontaneous
  Country: US (occurrence: US)
  Receive Date: 20160322
  Receipt Date: 20160329
  Transmission Date: 20160526
  Serious: Yes (Hospitalization, Other)
  Sender: FDA-Public Use
  Company Number: US-GLAXOSMITHKLINE-US2016039671

PATIENT
  Sex: Female

DRUGS (3)
  1. TUMS [Suspect]
     Active Substance: CALCIUM CARBONATE
     Indication: DYSPEPSIA
     Dosage: UNK
     Dates: start: 20150206
  2. TUMS [Suspect]
     Active Substance: CALCIUM CARBONATE
     Indication: NAUSEA
  3. TUMS [Suspect]
     Active Substance: CALCIUM CARBONATE
     Indication: ABDOMINAL DISCOMFORT
     Dosage: UNK
     Dates: start: 201409

REACTIONS (26)
  - Acute kidney injury [Unknown]
  - Renal impairment [Unknown]
  - Bone pain [Unknown]
  - Muscle spasms [Unknown]
  - Dehydration [Unknown]
  - Muscle twitching [Unknown]
  - Anxiety [Unknown]
  - Muscle contracture [Unknown]
  - Amnesia [Unknown]
  - Depressed level of consciousness [Unknown]
  - Dementia [Unknown]
  - Fatigue [Unknown]
  - Blood calcium increased [Unknown]
  - Hallucination [Unknown]
  - Myalgia [Unknown]
  - Asthenia [Unknown]
  - Condition aggravated [Unknown]
  - Product use issue [Unknown]
  - Encephalopathy [Unknown]
  - Confusional state [Unknown]
  - Disorientation [Unknown]
  - Hypercalcaemia [Unknown]
  - Cognitive disorder [Unknown]
  - Hypocalcaemia [Unknown]
  - Lethargy [Unknown]
  - Mental disorder [Unknown]

NARRATIVE: CASE EVENT DATE: 201410
